FAERS Safety Report 14336598 (Version 3)
Quarter: 2018Q1

REPORT INFORMATION
  Report Type: Spontaneous
  Country: CA (occurrence: CA)
  Receive Date: 20171229
  Receipt Date: 20180220
  Transmission Date: 20180509
  Serious: Yes (Other)
  Sender: FDA-Public Use
  Company Number: CA-CELLTRION INC.-2017CA001618

PATIENT

DRUGS (10)
  1. CRESTOR [Concomitant]
     Active Substance: ROSUVASTATIN CALCIUM
     Dosage: 10 MG, UNK
     Dates: start: 2000
  2. OLMESARTAN [Concomitant]
     Active Substance: OLMESARTAN
     Dosage: UNK
     Route: 065
  3. INFLECTRA [Suspect]
     Active Substance: INFLIXIMAB-DYYB
     Indication: RHEUMATOID ARTHRITIS
     Dosage: EVERY 2 MONTHS
     Route: 042
     Dates: start: 201701
  4. INFLECTRA [Suspect]
     Active Substance: INFLIXIMAB-DYYB
     Dosage: 192 MG, (EVERY 2, 6 WEEKS, THEN EVERY 8 WEEKS FOR 6 MONTHS)
     Route: 042
     Dates: start: 2017
  5. ARAVA [Concomitant]
     Active Substance: LEFLUNOMIDE
     Dosage: 20 MG, DAILY
     Dates: start: 2012
  6. PREDNISONE                         /00044702/ [Concomitant]
     Active Substance: PREDNISONE
     Dosage: 2.5 MG, BID
     Dates: start: 2004
  7. INFLECTRA [Suspect]
     Active Substance: INFLIXIMAB-DYYB
     Dosage: 162 MG, EVERY 2, 6 WEEKS, THEN EVERY 8 WEEKS FOR 6 MONTHS
     Route: 042
     Dates: start: 20170118, end: 2017
  8. NAPROXEN. [Concomitant]
     Active Substance: NAPROXEN
     Dosage: 375 MG, DAILY
     Dates: start: 2011
  9. INFLECTRA [Suspect]
     Active Substance: INFLIXIMAB-DYYB
     Dosage: 192 MG, CYCLIC EVERY 8 WEEKS
     Route: 042
     Dates: start: 20170718, end: 20170816
  10. SULFASALAZINE. [Concomitant]
     Active Substance: SULFASALAZINE
     Dosage: 1000 MG, UNK
     Dates: start: 2000

REACTIONS (13)
  - Rash [Unknown]
  - Pain [Recovered/Resolved]
  - Rash erythematous [Recovered/Resolved]
  - Dizziness [Not Recovered/Not Resolved]
  - Blood pressure fluctuation [Recovered/Resolved]
  - Spinal fracture [Unknown]
  - Product use issue [Unknown]
  - Drug intolerance [Unknown]
  - Weight increased [Not Recovered/Not Resolved]
  - Bone density decreased [Unknown]
  - Weight decreased [Unknown]
  - Heart rate abnormal [Unknown]
  - Hypotension [Not Recovered/Not Resolved]

NARRATIVE: CASE EVENT DATE: 20170118
